FAERS Safety Report 15967886 (Version 1)
Quarter: 2019Q1

REPORT INFORMATION
  Report Type: Report from Study
  Country: GB (occurrence: GB)
  Receive Date: 20190215
  Receipt Date: 20190215
  Transmission Date: 20190418
  Serious: Yes (Other)
  Sender: FDA-Public Use
  Company Number: PHHY2019GB031857

PATIENT
  Sex: Female

DRUGS (1)
  1. HYRIMOZ [Suspect]
     Active Substance: ADALIMUMAB-ADAZ
     Indication: HIDRADENITIS
     Dosage: 160MG AT WEEK 0, 80MG AT WEEK 2, 40MG WEEKLY THEREAFTER
     Route: 058
     Dates: start: 20190107

REACTIONS (1)
  - Inappropriate schedule of product administration [Unknown]
